FAERS Safety Report 12304411 (Version 1)
Quarter: 2016Q2

REPORT INFORMATION
  Report Type: Report from Study
  Country: US (occurrence: US)
  Receive Date: 20160426
  Receipt Date: 20160426
  Transmission Date: 20160815
  Serious: Yes (Hospitalization)
  Sender: FDA-Public Use
  Company Number: US-ROCHE-1736821

PATIENT
  Age: 62 Year
  Sex: Male
  Weight: 59 kg

DRUGS (6)
  1. TRASTUZUMAB [Suspect]
     Active Substance: TRASTUZUMAB
     Dosage: OVER 30-90 MIN ON DAY 57
     Route: 042
  2. TRASTUZUMAB [Suspect]
     Active Substance: TRASTUZUMAB
     Dosage: MAINTENANCE THERAPY ?CYCLE = 21 DAYS (MAX= 13 CYCLES)?MOST RECENT DOSE PRIOR TO SAE: 29/OCT/2015
     Route: 042
  3. TRASTUZUMAB [Suspect]
     Active Substance: TRASTUZUMAB
     Indication: OESOPHAGEAL ADENOCARCINOMA
     Dosage: OVER 90 MIN ON DAY 1
     Route: 042
     Dates: start: 20150903
  4. CARBOPLATIN. [Suspect]
     Active Substance: CARBOPLATIN
     Indication: OESOPHAGEAL ADENOCARCINOMA
     Dosage: AUC=2?MOST RECENT DOSE PRIOR TO SAE: 15/OCT/2015
     Route: 042
     Dates: start: 20150903
  5. PACLITAXEL. [Suspect]
     Active Substance: PACLITAXEL
     Indication: OESOPHAGEAL ADENOCARCINOMA
     Dosage: MOST RECENT DOSE PRIOR TO SAE: 15/OCT/2015
     Route: 042
     Dates: start: 20150903
  6. TRASTUZUMAB [Suspect]
     Active Substance: TRASTUZUMAB
     Dosage: OVER 30-60 MIN ON DAYS 8, 15, 22, 29 AND 36
     Route: 042

REACTIONS (2)
  - Oesophageal fistula [Recovering/Resolving]
  - Gastrointestinal anastomotic leak [Recovering/Resolving]

NARRATIVE: CASE EVENT DATE: 20151124
